FAERS Safety Report 25178560 (Version 3)
Quarter: 2025Q2

REPORT INFORMATION
  Report Type: Report from Study
  Country: FR (occurrence: FR)
  Receive Date: 20250409
  Receipt Date: 20250602
  Transmission Date: 20250717
  Serious: Yes (Hospitalization)
  Sender: ABBVIE
  Company Number: FR-ABBVIE-6216120

PATIENT
  Age: 82 Year
  Sex: Female
  Weight: 40 kg

DRUGS (4)
  1. FOSCARBIDOPA\FOSLEVODOPA [Suspect]
     Active Substance: FOSCARBIDOPA\FOSLEVODOPA
     Indication: Parkinson^s disease
     Route: 058
     Dates: start: 20250328, end: 20250407
  2. RABEPRAZOLE [Concomitant]
     Active Substance: RABEPRAZOLE
     Indication: Product used for unknown indication
     Route: 048
     Dates: start: 2019
  3. BISOPROLOL [Concomitant]
     Active Substance: BISOPROLOL
     Indication: Tachycardia
     Route: 048
     Dates: start: 2015
  4. ESCITALOPRAM [Concomitant]
     Active Substance: ESCITALOPRAM OXALATE
     Indication: Hypertension
     Route: 048
     Dates: start: 2020

REACTIONS (4)
  - Femoral neck fracture [Not Recovered/Not Resolved]
  - Bone pain [Not Recovered/Not Resolved]
  - Fall [Not Recovered/Not Resolved]
  - Crepitations [Not Recovered/Not Resolved]

NARRATIVE: CASE EVENT DATE: 20250402
